FAERS Safety Report 5569758-2 (Version None)
Quarter: 2007Q4

REPORT INFORMATION
  Report Type: 
  Country: None (occurrence: None)
  Receive Date: 20071218
  Receipt Date: 20071207
  Transmission Date: 20080405
  Serious: Yes (Other)
  Sender: FDA-Public Use
  Company Number: 18032

PATIENT
  Age: 60 Year
  Sex: Female
  Weight: 66 kg

DRUGS (5)
  1. CISPLATIN [Suspect]
     Indication: LUNG NEOPLASM MALIGNANT
     Dosage: 80 MG FREQ IV
     Route: 042
     Dates: start: 20071012, end: 20071012
  2. VINORELBINE [Suspect]
     Indication: LUNG NEOPLASM MALIGNANT
     Dosage: 40 MG FREQ IV
     Route: 042
     Dates: start: 20071012, end: 20071012
  3. DEXAMETHASONE TAB [Concomitant]
  4. METOCLOPRAMIDE [Concomitant]
  5. ONDANSETRON [Concomitant]

REACTIONS (3)
  - BLOOD PRESSURE INCREASED [None]
  - FLANK PAIN [None]
  - URINARY RETENTION [None]
